FAERS Safety Report 25756335 (Version 2)
Quarter: 2025Q3

REPORT INFORMATION
  Report Type: Spontaneous
  Country: GB (occurrence: GB)
  Receive Date: 20250903
  Receipt Date: 20250929
  Transmission Date: 20251021
  Serious: Yes (Death, Hospitalization, Other)
  Sender: DAIICHI
  Company Number: GB-DAIICHI SANKYO, INC.-DS-2025-160985-GB

PATIENT
  Age: 62 Year
  Sex: Female

DRUGS (2)
  1. ENHERTU [Suspect]
     Active Substance: FAM-TRASTUZUMAB DERUXTECAN-NXKI
     Indication: Breast cancer metastatic
     Route: 065
     Dates: start: 20250203, end: 20250203
  2. ENHERTU [Suspect]
     Active Substance: FAM-TRASTUZUMAB DERUXTECAN-NXKI
     Route: 065
     Dates: start: 20250304, end: 20250304

REACTIONS (10)
  - Disease progression [Fatal]
  - Cardiac failure [Unknown]
  - Respiratory failure [Unknown]
  - Metastases to bone [Unknown]
  - Metastases to liver [Unknown]
  - Interstitial lung disease [Unknown]
  - Nausea [Unknown]
  - Vomiting [Unknown]
  - Pyrexia [Unknown]
  - Drug intolerance [Unknown]

NARRATIVE: CASE EVENT DATE: 20250523
